FAERS Safety Report 4757107-9 (Version None)
Quarter: 2005Q3

REPORT INFORMATION
  Report Type: 
  Country: None (occurrence: None)
  Receive Date: 20050831
  Receipt Date: 20050824
  Transmission Date: 20060218
  Serious: Yes (Hospitalization)
  Sender: FDA-Public Use
  Company Number: PHBS2005NO12483

PATIENT
  Age: 33 Year
  Sex: Male

DRUGS (4)
  1. LEPONEX [Suspect]
     Indication: SCHIZOPHRENIA
     Dosage: 500 MG/D
     Route: 048
     Dates: start: 20050201
  2. LEPONEX [Suspect]
     Route: 048
     Dates: end: 20050601
  3. ALOPAM [Concomitant]
     Indication: SCHIZOPHRENIA
     Dosage: 15 MG/D
     Route: 048
  4. ZELDOX [Concomitant]
     Indication: SCHIZOPHRENIA
     Dosage: 160 MG/D
     Route: 048
     Dates: end: 20050401

REACTIONS (9)
  - BLADDER DISORDER [None]
  - BLOOD CREATININE INCREASED [None]
  - BLOOD LACTATE DEHYDROGENASE INCREASED [None]
  - BLOOD UREA INCREASED [None]
  - HAEMOLYTIC ANAEMIA [None]
  - HYDRONEPHROSIS [None]
  - RENAL FAILURE [None]
  - RETICULOCYTE COUNT INCREASED [None]
  - URINARY RETENTION [None]
